FAERS Safety Report 25237779 (Version 1)
Quarter: 2025Q2

REPORT INFORMATION
  Report Type: Report from Study
  Country: CA (occurrence: CA)
  Receive Date: 20250425
  Receipt Date: 20250425
  Transmission Date: 20250716
  Serious: Yes (Other)
  Sender: ABBVIE
  Company Number: CA-ABBVIE-6244394

PATIENT
  Age: 64 Year
  Sex: Male

DRUGS (1)
  1. SKYRIZI [Suspect]
     Active Substance: RISANKIZUMAB-RZAA
     Indication: Crohn^s disease
     Route: 058

REACTIONS (4)
  - Small intestinal obstruction [Unknown]
  - Intestinal fibrosis [Not Recovered/Not Resolved]
  - Small intestinal stenosis [Unknown]
  - Constipation [Unknown]

NARRATIVE: CASE EVENT DATE: 20240701
